FAERS Safety Report 24125800 (Version 1)
Quarter: 2024Q3

REPORT INFORMATION
  Report Type: Report from Study
  Country: FR (occurrence: FR)
  Receive Date: 20240723
  Receipt Date: 20240723
  Transmission Date: 20241016
  Serious: Yes (Hospitalization)
  Sender: SERVIER
  Company Number: FR-SERVIER-S21007374

PATIENT

DRUGS (10)
  1. PEGASPARGASE [Suspect]
     Active Substance: PEGASPARGASE
     Indication: Acute lymphocytic leukaemia
     Dosage: 2500 IU ON D4, D43
     Route: 042
     Dates: start: 20210429
  2. VINCRISTINE [Suspect]
     Active Substance: VINCRISTINE
     Indication: Acute lymphocytic leukaemia
     Dosage: 1.5 MG ON D1, D8, D15
     Route: 042
     Dates: start: 20210426, end: 20210616
  3. DOXORUBICIN HYDROCHLORIDE [Suspect]
     Active Substance: DOXORUBICIN HYDROCHLORIDE
     Indication: Acute lymphocytic leukaemia
     Dosage: 25 MG ON D1, D8, D15
     Route: 042
     Dates: start: 20210426, end: 20210510
  4. DEXAMETHASONE [Suspect]
     Active Substance: DEXAMETHASONE
     Indication: Acute lymphocytic leukaemia
     Dosage: 10 MG ON D1 TO D7, D15 TO D21
     Route: 048
     Dates: start: 20210426, end: 20210521
  5. METHOTREXATE [Suspect]
     Active Substance: METHOTREXATE
     Indication: Acute lymphocytic leukaemia
     Dosage: 12 MG ON D4, D31
     Route: 037
     Dates: start: 20210429, end: 20210528
  6. CYTARABINE [Suspect]
     Active Substance: CYTARABINE
     Indication: Acute lymphocytic leukaemia
     Dosage: 30 MG ON D4, D31
     Route: 037
     Dates: start: 20210429, end: 20210528
  7. CYTARABINE [Suspect]
     Active Substance: CYTARABINE
     Dosage: 75 MG ON D31 TO D34, D38 TO D41
     Route: 042
     Dates: start: 20210528, end: 20210607
  8. HYDROCORTISONE [Suspect]
     Active Substance: HYDROCORTISONE\HYDROCORTISONE ACETATE
     Indication: Acute lymphocytic leukaemia
     Dosage: 15 MG ON D4, D31
     Route: 037
     Dates: start: 20210429, end: 20210528
  9. THIOGUANINE ANHYDROUS [Suspect]
     Active Substance: THIOGUANINE ANHYDROUS
     Indication: Acute lymphocytic leukaemia
     Dosage: 60 MG, D29 TO D42
     Route: 048
     Dates: start: 20210526, end: 20210608
  10. CYCLOPHOSPHAMIDE [Suspect]
     Active Substance: CYCLOPHOSPHAMIDE
     Indication: Acute lymphocytic leukaemia
     Dosage: 1000 MG ON D29
     Route: 042
     Dates: start: 20210526, end: 20210526

REACTIONS (1)
  - Febrile bone marrow aplasia [Recovered/Resolved]

NARRATIVE: CASE EVENT DATE: 20210619
